FAERS Safety Report 5399027-5 (Version None)
Quarter: 2007Q3

REPORT INFORMATION
  Report Type: 
  Country: None (occurrence: None)
  Receive Date: 20070723
  Receipt Date: 20070723
  Transmission Date: 20080115
  Serious: Yes (Life-Threatening)
  Sender: FDA-Public Use
  Company Number: None

PATIENT
  Age: 67 Year
  Sex: Male
  Weight: 84.8226 kg

DRUGS (2)
  1. REGLAN [Suspect]
     Indication: ILEUS
     Dosage: 10 MG QID PO
     Route: 048
     Dates: start: 20070517, end: 20070529
  2. REGLAN [Suspect]
     Indication: ILEUS
     Dosage: 10 MG QID PO
     Route: 048
     Dates: start: 20070530, end: 20070621

REACTIONS (9)
  - AGITATION [None]
  - ANXIETY [None]
  - BLOOD POTASSIUM DECREASED [None]
  - BLOOD PRESSURE INCREASED [None]
  - DEPRESSION [None]
  - FORMICATION [None]
  - NIGHTMARE [None]
  - TREMOR [None]
  - UNEVALUABLE EVENT [None]
